FAERS Safety Report 6369644-4 (Version None)
Quarter: 2009Q3

REPORT INFORMATION
  Report Type: 
  Country: None (occurrence: None)
  Receive Date: 20090918
  Receipt Date: 20090908
  Transmission Date: 20100115
  Serious: Yes (Life-Threatening, Hospitalization, Other)
  Sender: FDA-Public Use
  Company Number: 2009-02874

PATIENT
  Age: 55 Year
  Sex: Male
  Weight: 101.2 kg

DRUGS (29)
  1. VELCADE [Suspect]
     Indication: MANTLE CELL LYMPHOMA
     Dosage: 1.3 MG/M2,
     Dates: start: 20090706, end: 20090720
  2. VELCADE [Suspect]
  3. ETOPOSIDE [Suspect]
     Indication: MANTLE CELL LYMPHOMA
     Dosage: 25 MG/M2, INTRAVENOUS
     Route: 042
     Dates: start: 20090720, end: 20090720
  4. PREDNISONE [Suspect]
     Indication: MANTLE CELL LYMPHOMA
  5. VINCRISTINE [Suspect]
     Indication: MANTLE CELL LYMPHOMA
     Dosage: 0.4 MG/M2,
     Dates: start: 20090720, end: 20090724
  6. CYCLOPHOSPHAMIDE [Suspect]
     Indication: MANTLE CELL LYMPHOMA
     Dosage: 750 MG/M2,
     Dates: start: 20090724, end: 20090724
  7. DOXORUBICIN HCL [Suspect]
     Indication: MANTLE CELL LYMPHOMA
     Dosage: 12 MG/M2, INTRAVENOUS
     Route: 042
     Dates: start: 20090720, end: 20090720
  8. RITUXIMAB(RITUXIMAB) INJECTION, 375MG/M2 [Suspect]
     Indication: MANTLE CELL LYMPHOMA
     Dosage: 375 MG/M2,
     Dates: start: 20090720, end: 20090720
  9. ATENOLOL [Concomitant]
  10. COZAAR [Concomitant]
  11. AMLODIPINE [Concomitant]
  12. LASIX [Concomitant]
  13. LOVENOX [Concomitant]
  14. METHYLPREDNISOLONE 4MG TAB [Concomitant]
  15. CLONIDINE [Concomitant]
  16. SEVELAMER (SEVELAMER) [Concomitant]
  17. TAMSULOSIN HCL [Concomitant]
  18. ACETAMINOPHEN [Concomitant]
  19. DIPHENHYDRAMINE HCL [Concomitant]
  20. DOCUSATE SODIUM (DOCUSATE SODIUM) [Concomitant]
  21. METOLAZONE [Concomitant]
  22. METOPROLOL (METOPROLOL) [Concomitant]
  23. OMEPRAZOLE [Concomitant]
  24. ALLOPURINOL [Concomitant]
  25. CITRIC ACID (CITRIC ACID) [Concomitant]
  26. ZOLPIDEM [Concomitant]
  27. HEPARIN [Concomitant]
  28. INSULIN (INSULIN) [Concomitant]
  29. PREDNISONE [Concomitant]

REACTIONS (13)
  - ACINETOBACTER INFECTION [None]
  - ANURIA [None]
  - BLOOD CREATININE INCREASED [None]
  - BLOOD UREA INCREASED [None]
  - CONFUSIONAL STATE [None]
  - CONTINUOUS HAEMODIAFILTRATION [None]
  - ESCHERICHIA INFECTION [None]
  - HAEMATOCRIT DECREASED [None]
  - HAEMODIALYSIS [None]
  - HAEMOGLOBIN DECREASED [None]
  - PLATELET COUNT DECREASED [None]
  - RESPIRATORY FAILURE [None]
  - SEPTIC SHOCK [None]
